FAERS Safety Report 4288846-4 (Version None)
Quarter: 2004Q1

REPORT INFORMATION
  Report Type: 
  Country: None (occurrence: None)
  Receive Date: 20040205
  Receipt Date: 20040115
  Transmission Date: 20041129
  Serious: Yes (Death)
  Sender: FDA-Public Use
  Company Number: EWC040137666

PATIENT
  Age: 40 Year
  Sex: Male

DRUGS (4)
  1. ZYPREXA [Suspect]
     Indication: BIPOLAR DISORDER
  2. NOZINAN (LEVOMEPROMAZINE) [Concomitant]
  3. TEGRETOL [Concomitant]
  4. REMERON [Concomitant]

REACTIONS (2)
  - ACCIDENTAL OVERDOSE [None]
  - ALCOHOL USE [None]
